FAERS Safety Report 6389591-1 (Version None)
Quarter: 2009Q4

REPORT INFORMATION
  Report Type: 
  Country: None (occurrence: None)
  Receive Date: 20091006
  Receipt Date: 20090924
  Transmission Date: 20100525
  Serious: Yes (Hospitalization, Other)
  Sender: FDA-Public Use
  Company Number: US-ASTRAZENECA-2009SE15186

PATIENT
  Age: 75 Year
  Sex: Male

DRUGS (8)
  1. CASODEX [Suspect]
     Route: 048
     Dates: start: 20020101
  2. TOPROL-XL [Concomitant]
  3. PROSCAR [Concomitant]
  4. FLOMAX [Concomitant]
  5. LIPITOR [Concomitant]
  6. KLOR-CON [Concomitant]
  7. RESTERIL [Concomitant]
  8. CLONOPIN [Concomitant]

REACTIONS (8)
  - BLOOD PRESSURE DECREASED [None]
  - CONFUSIONAL STATE [None]
  - DYSPNOEA [None]
  - FALL [None]
  - HIP ARTHROPLASTY [None]
  - HYPONATRAEMIA [None]
  - OEDEMA PERIPHERAL [None]
  - TRANSIENT ISCHAEMIC ATTACK [None]
